FAERS Safety Report 22348482 (Version 3)
Quarter: 2023Q2

REPORT INFORMATION
  Report Type: Spontaneous
  Country: DE (occurrence: DE)
  Receive Date: 20230522
  Receipt Date: 20230607
  Transmission Date: 20230721
  Serious: Yes (Hospitalization)
  Sender: FDA-Public Use
  Company Number: DE-SAMSUNG BIOEPIS-SB-2023-08349

PATIENT
  Age: 40 Year
  Sex: Female
  Weight: 95 kg

DRUGS (7)
  1. CARBOPLATIN [Suspect]
     Active Substance: CARBOPLATIN
     Indication: Breast cancer female
     Dosage: UNK UNK, Q3W (5 AUC)
     Route: 042
     Dates: start: 20230123, end: 20230321
  2. CARBOPLATIN [Suspect]
     Active Substance: CARBOPLATIN
     Dosage: UNK, Q3W (6 AUC)
     Route: 042
     Dates: end: 20230427
  3. PACLITAXEL [Suspect]
     Active Substance: PACLITAXEL
     Indication: Breast cancer female
     Dosage: 80 MG, QW (EVERY 21 DAYS)
     Route: 042
     Dates: start: 20230123, end: 20230427
  4. PERTUZUMAB [Suspect]
     Active Substance: PERTUZUMAB
     Indication: Breast cancer female
     Dosage: 420 MG, Q3W (EVERY 21 DAYS)
     Route: 042
     Dates: start: 20230123, end: 20230427
  5. PACLITAXEL [Suspect]
     Active Substance: PACLITAXEL
     Indication: Breast cancer female
     Dosage: 100 MG/M2, QW (DAY 1, DAY 8, DAY 15)
     Route: 042
     Dates: start: 20230123
  6. PACLITAXEL [Suspect]
     Active Substance: PACLITAXEL
     Dosage: 100 MG/M2, 21D
     Route: 042
     Dates: end: 20230321
  7. PACLITAXEL [Suspect]
     Active Substance: PACLITAXEL
     Dosage: 75 MG, QW
     Route: 042
     Dates: end: 20230427

REACTIONS (5)
  - Respiratory tract infection [Recovered/Resolved]
  - Febrile neutropenia [Recovered/Resolved]
  - Gastroenteritis [Not Recovered/Not Resolved]
  - Hypokalaemia [Recovered/Resolved]
  - Diarrhoea [Not Recovered/Not Resolved]

NARRATIVE: CASE EVENT DATE: 20230321
